FAERS Safety Report 14419966 (Version 1)
Quarter: 2018Q1

REPORT INFORMATION
  Report Type: Spontaneous
  Country: FR (occurrence: FR)
  Receive Date: 20180122
  Receipt Date: 20180122
  Transmission Date: 20180509
  Serious: Yes (Death)
  Sender: FDA-Public Use
  Company Number: FR-PFIZER INC-2017418839

PATIENT
  Age: 92 Year
  Sex: Female
  Weight: 45 kg

DRUGS (7)
  1. INSULIN [Concomitant]
     Active Substance: INSULIN NOS
     Indication: DIABETES MELLITUS
     Dosage: UNK, AS NEEDED
  2. CREON [Concomitant]
     Active Substance: PANCRELIPASE AMYLASE\PANCRELIPASE LIPASE\PANCRELIPASE PROTEASE
     Indication: PANCREATIC OPERATION
     Dosage: 2 DF, 1X/DAY
     Route: 048
     Dates: start: 2005, end: 20170930
  3. LYRICA [Interacting]
     Active Substance: PREGABALIN
     Indication: PAIN
  4. DOLIPRANE [Concomitant]
     Active Substance: ACETAMINOPHEN
     Dosage: UNK
  5. LYRICA [Suspect]
     Active Substance: PREGABALIN
     Indication: ESCHAR
     Dosage: 25 MG, 2X/DAY
     Route: 048
     Dates: start: 20170913, end: 20170930
  6. OXYCONTIN [Interacting]
     Active Substance: OXYCODONE HYDROCHLORIDE
     Indication: PAIN
     Dosage: 15 MG, 1X/DAY
     Route: 048
     Dates: start: 201205, end: 201709
  7. OXYCONTIN [Interacting]
     Active Substance: OXYCODONE HYDROCHLORIDE
     Indication: SPINAL PAIN

REACTIONS (10)
  - Drug ineffective [Unknown]
  - Cystitis [Fatal]
  - Pulmonary oedema [Fatal]
  - Disorientation [Unknown]
  - Somnolence [Fatal]
  - Confusional state [Fatal]
  - Dehydration [Fatal]
  - Amnesia [Unknown]
  - Lung infection [Fatal]
  - Potentiating drug interaction [Fatal]

NARRATIVE: CASE EVENT DATE: 201709
